FAERS Safety Report 12709248 (Version 4)
Quarter: 2017Q2

REPORT INFORMATION
  Report Type: Spontaneous
  Country: US (occurrence: US)
  Receive Date: 20160901
  Receipt Date: 20170413
  Transmission Date: 20170830
  Serious: Yes (Hospitalization)
  Sender: FDA-Public Use
  Company Number: US-BAUSCH-BL-2016-020850

PATIENT
  Age: 56 Year
  Sex: Female

DRUGS (3)
  1. XIFAXAN [Suspect]
     Active Substance: RIFAXIMIN
     Indication: HEPATIC ENCEPHALOPATHY
     Route: 065
     Dates: start: 201602
  2. XIFAXAN [Suspect]
     Active Substance: RIFAXIMIN
     Indication: CHRONIC HEPATIC FAILURE
  3. LACTULOSE. [Suspect]
     Active Substance: LACTULOSE
     Indication: CHRONIC HEPATIC FAILURE
     Route: 065

REACTIONS (8)
  - Abdominal distension [Not Recovered/Not Resolved]
  - Constipation [Recovered/Resolved]
  - Ammonia increased [Not Recovered/Not Resolved]
  - Faecaloma [Unknown]
  - Diarrhoea [Not Recovered/Not Resolved]
  - Gastrointestinal motility disorder [Recovered/Resolved]
  - Blood count abnormal [Not Recovered/Not Resolved]
  - Confusional state [Not Recovered/Not Resolved]

NARRATIVE: CASE EVENT DATE: 201607
